FAERS Safety Report 9223448 (Version 2)
Quarter: 2013Q2

REPORT INFORMATION
  Report Type: Report from Study
  Country: US (occurrence: US)
  Receive Date: 20130410
  Receipt Date: 20130524
  Transmission Date: 20140414
  Serious: Yes (Hospitalization)
  Sender: FDA-Public Use
  Company Number: US-ABBOTT-13P-163-1054332-00

PATIENT
  Sex: Male

DRUGS (18)
  1. HUMIRA [Suspect]
     Indication: CROHN^S DISEASE
     Dates: start: 20120924, end: 20130202
  2. IRON [Concomitant]
     Indication: PRODUCT USED FOR UNKNOWN INDICATION
  3. ASACOL [Concomitant]
     Indication: CROHN^S DISEASE
  4. LORATADINE [Concomitant]
     Indication: HYPERSENSITIVITY
  5. XANAX [Concomitant]
     Indication: ANXIETY
     Dosage: 0.5, 3 TIMES DAILY, AS NEEDED
  6. HYDROCODONE [Concomitant]
     Indication: PAIN
     Dosage: 10/325MG, 1 TAB EVERY 8 HOURS, AS NEEDED
  7. DULERA [Concomitant]
     Indication: ASTHMA
     Dosage: INHALER
  8. DULERA [Concomitant]
     Indication: CHRONIC OBSTRUCTIVE PULMONARY DISEASE
  9. XANAX [Concomitant]
     Indication: SLEEP DISORDER
     Dosage: EXTENDED RELEASE, AT BEDTIME
  10. VITAMIN D [Concomitant]
     Indication: VITAMIN D DEFICIENCY
     Dosage: WEEKLY
  11. MULTIVITAMINS [Concomitant]
     Indication: VITAMIN SUPPLEMENTATION
     Dosage: DAILY
  12. CYMBALTA [Concomitant]
     Indication: PROPHYLAXIS
     Dosage: STARTED DURING HOSPITALIZATION AND CONTINUED AFTER DISCHARGE
  13. SPIRIVA [Concomitant]
     Indication: DYSPNOEA
     Dosage: INHALER, DAILY
  14. BENAZEPRIL [Concomitant]
     Indication: HYPERTENSION
  15. PREDNISONE [Concomitant]
     Indication: PRODUCT USED FOR UNKNOWN INDICATION
  16. LASIX [Concomitant]
     Indication: FLUID RETENTION
  17. BENAZEPRIL [Concomitant]
     Indication: BLOOD PRESSURE
  18. BENADRYL [Concomitant]
     Indication: PRODUCT USED FOR UNKNOWN INDICATION

REACTIONS (6)
  - Oxygen saturation decreased [Recovering/Resolving]
  - Influenza [Recovering/Resolving]
  - Pneumonia [Recovering/Resolving]
  - Dyspnoea [Recovering/Resolving]
  - Sinus disorder [Not Recovered/Not Resolved]
  - Nasopharyngitis [Not Recovered/Not Resolved]
